FAERS Safety Report 15638151 (Version 2)
Quarter: 2020Q2

REPORT INFORMATION
  Report Type: Spontaneous
  Country: US (occurrence: US)
  Receive Date: 20181120
  Receipt Date: 20200512
  Transmission Date: 20200713
  Serious: Yes (Death, Other)
  Sender: FDA-Public Use
  Company Number: US-PFIZER INC-2018471886

PATIENT
  Age: 86 Year
  Sex: Female

DRUGS (1)
  1. REVATIO [Suspect]
     Active Substance: SILDENAFIL CITRATE
     Dosage: 1 DF, 3X/DAY
     Route: 048

REACTIONS (9)
  - Oedema [Unknown]
  - Death [Fatal]
  - Chest pain [Unknown]
  - Right ventricular failure [Unknown]
  - Palpitations [Unknown]
  - Pulmonary hypertension [Unknown]
  - Hypertension [Unknown]
  - Hypercholesterolaemia [Unknown]
  - Coronary artery disease [Unknown]
